FAERS Safety Report 6039867-2 (Version None)
Quarter: 2009Q1

REPORT INFORMATION
  Report Type: 
  Country: None (occurrence: None)
  Receive Date: 20090116
  Receipt Date: 20090113
  Transmission Date: 20090719
  Serious: Yes (Other)
  Sender: FDA-Public Use
  Company Number: US-BAYER-200814334BCC

PATIENT
  Age: 81 Year
  Sex: Female
  Weight: 68 kg

DRUGS (2)
  1. ALEVE [Suspect]
     Indication: ARTHRITIS
     Dosage: TOTAL DAILY DOSE: 440 MG  UNIT DOSE: 220 MG
     Route: 048
     Dates: start: 20081001, end: 20081106
  2. ALEVE [Suspect]
     Route: 048
     Dates: start: 20081001, end: 20081106

REACTIONS (2)
  - FAECES DISCOLOURED [None]
  - FEELING ABNORMAL [None]
